FAERS Safety Report 21004470 (Version 1)
Quarter: 2022Q2

REPORT INFORMATION
  Report Type: Report from Study
  Country: US (occurrence: US)
  Receive Date: 20220624
  Receipt Date: 20220624
  Transmission Date: 20220721
  Serious: Yes (Other)
  Sender: FDA-Public Use
  Company Number: US-CC-90009-AML-002-1041001-20210419-0005SG

PATIENT
  Age: 81 Year
  Sex: Female
  Weight: 48 kg

DRUGS (35)
  1. AZACITIDINE [Suspect]
     Active Substance: AZACITIDINE
     Indication: Acute myeloid leukaemia
     Dosage: STUDY THERAPY WAS INTERRUPTED DUE TO SAE ON 17-APR-2021?21-APR-2021-MOST RECENT DOSE
     Route: 058
     Dates: start: 20210312
  2. VENETOCLAX [Suspect]
     Active Substance: VENETOCLAX
     Indication: Acute myeloid leukaemia
     Dosage: STUDY THERAPY WAS INTERRUPTED DUE TO SAE ON 14-APR-2021?MOST RECENT DOSE ON 21-APR-2021
     Route: 048
     Dates: start: 20210312
  3. VENETOCLAX [Suspect]
     Active Substance: VENETOCLAX
     Route: 048
     Dates: start: 20210312, end: 20210314
  4. VENETOCLAX [Suspect]
     Active Substance: VENETOCLAX
     Route: 048
     Dates: start: 20210421, end: 20210426
  5. COMPAZINE [Concomitant]
     Active Substance: PROCHLORPERAZINE MALEATE
     Indication: Nausea
     Dosage: 5-10 MG
     Route: 048
     Dates: start: 20210318
  6. OSCAL [CALCIUM CARBONATE] [Concomitant]
     Indication: Mineral supplementation
     Dosage: 1250 MG X 3 X 1 DAYS
     Route: 048
     Dates: start: 20210312
  7. CHOLECALCIFEROL [Concomitant]
     Active Substance: CHOLECALCIFEROL
     Indication: Prophylaxis
     Dosage: 1000 IU X 1 X 1 DAYS
     Route: 048
     Dates: start: 20210312
  8. LEVAQUIN [Concomitant]
     Active Substance: LEVOFLOXACIN
     Indication: Prophylaxis
     Dosage: 500 MG X 1 X 1 DAYS
     Route: 048
     Dates: start: 20210308
  9. EMLA [Concomitant]
     Active Substance: LIDOCAINE\PRILOCAINE
     Indication: Pain
     Dosage: 25 G X 1 X 1 DAYS
     Route: 061
     Dates: start: 20210104
  10. VFEND [Concomitant]
     Active Substance: VORICONAZOLE
     Indication: Prophylaxis
     Dosage: 200 MG X 1 X 12 HOURS
     Route: 048
     Dates: start: 20210501
  11. ALUMINUM-MAGNESIUM HYDROXIDE-SIMETHICONE [Concomitant]
     Indication: Gastrooesophageal reflux disease
     Route: 048
     Dates: start: 20210321, end: 20210416
  12. MAXIPIME [Concomitant]
     Active Substance: CEFEPIME HYDROCHLORIDE
     Indication: Febrile neutropenia
     Route: 048
     Dates: start: 20210416, end: 20210417
  13. COLACE [Concomitant]
     Active Substance: DOCUSATE SODIUM
     Indication: Constipation
     Route: 048
     Dates: start: 20210313, end: 20210413
  14. CETYLPYRIDINIUM CHLORIDE [Concomitant]
     Active Substance: CETYLPYRIDINIUM CHLORIDE
     Indication: Dry mouth
     Route: 048
     Dates: start: 20210321, end: 20210405
  15. PEPCID [Concomitant]
     Active Substance: FAMOTIDINE
     Indication: Gastrooesophageal reflux disease
     Route: 042
     Dates: start: 20210415, end: 20210415
  16. ENULOSE [Concomitant]
     Active Substance: LACTULOSE
     Indication: Constipation
     Route: 048
     Dates: start: 20210414, end: 20210419
  17. PREVACID [Concomitant]
     Active Substance: LANSOPRAZOLE
     Indication: Gastrooesophageal reflux disease
     Route: 048
     Dates: start: 20210330, end: 20210404
  18. PREVACID [Concomitant]
     Active Substance: LANSOPRAZOLE
     Route: 048
     Dates: start: 20210503
  19. SYNTHROID [Concomitant]
     Active Substance: LEVOTHYROXINE SODIUM
     Indication: Hypothyroidism
     Route: 048
     Dates: start: 20210313, end: 20210326
  20. SYNTHROID [Concomitant]
     Active Substance: LEVOTHYROXINE SODIUM
     Route: 048
     Dates: start: 20210327
  21. LIDODERM [Concomitant]
     Active Substance: LIDOCAINE
     Indication: Cellulitis
     Dosage: 1 PATCH
     Route: 061
     Dates: start: 20210320, end: 20210401
  22. LIDODERM [Concomitant]
     Active Substance: LIDOCAINE
     Indication: Pain
  23. DEMEROL [Concomitant]
     Active Substance: MEPERIDINE HYDROCHLORIDE
     Indication: Sepsis
     Route: 042
     Dates: start: 20210416, end: 20210416
  24. MEROPENEM [Concomitant]
     Active Substance: MEROPENEM
     Indication: Urinary tract infection
     Route: 042
     Dates: start: 20210417, end: 20210419
  25. LOPRESSOR [Concomitant]
     Active Substance: METOPROLOL TARTRATE
     Indication: Syncope
     Route: 048
     Dates: start: 20210418
  26. ZOFRAN [Concomitant]
     Active Substance: ONDANSETRON HYDROCHLORIDE
     Indication: Nausea
     Route: 048
     Dates: start: 20210316, end: 20210326
  27. ZOFRAN [Concomitant]
     Active Substance: ONDANSETRON HYDROCHLORIDE
     Route: 042
     Dates: start: 20210316, end: 20210325
  28. PROTONIX [Concomitant]
     Active Substance: PANTOPRAZOLE SODIUM
     Indication: Gastrooesophageal reflux disease
     Route: 042
     Dates: start: 20210321, end: 20210329
  29. ZOSYN [Concomitant]
     Active Substance: PIPERACILLIN SODIUM\TAZOBACTAM SODIUM
     Indication: Sepsis
     Route: 042
     Dates: start: 20210324, end: 20210405
  30. MIRALAX [Concomitant]
     Active Substance: POLYETHYLENE GLYCOL 3350
     Indication: Constipation
     Route: 048
     Dates: start: 20210304
  31. DELTASONE [Concomitant]
     Active Substance: PREDNISONE
     Indication: Acute febrile neutrophilic dermatosis
     Route: 048
     Dates: start: 20210329, end: 20210329
  32. DELTASONE [Concomitant]
     Active Substance: PREDNISONE
     Route: 048
     Dates: start: 20210330, end: 20210408
  33. DELTASONE [Concomitant]
     Active Substance: PREDNISONE
     Route: 048
     Dates: start: 20210417, end: 20210420
  34. CALCIUM CHLORIDE\SODIUM CHLORIDE\SODIUM PHOSPHATE, DIBASIC, ANHYDROUS\ [Concomitant]
     Active Substance: CALCIUM CHLORIDE\SODIUM CHLORIDE\SODIUM PHOSPHATE, DIBASIC, ANHYDROUS\SODIUM PHOSPHATE, MONOBASIC, A
     Indication: Dry mouth
     Route: 048
     Dates: start: 20210410, end: 20210410
  35. VANCOCIN [Concomitant]
     Active Substance: VANCOMYCIN HYDROCHLORIDE
     Indication: Sepsis
     Route: 042
     Dates: start: 20210416, end: 20210419

REACTIONS (1)
  - Colitis [Recovered/Resolved]

NARRATIVE: CASE EVENT DATE: 20210418
